FAERS Safety Report 25620287 (Version 1)
Quarter: 2025Q3

REPORT INFORMATION
  Report Type: Spontaneous
  Country: US (occurrence: US)
  Receive Date: 20250730
  Receipt Date: 20250730
  Transmission Date: 20251021
  Serious: Yes (Life-Threatening, Hospitalization, Other)
  Sender: ENDO
  Company Number: US-ENDO USA, INC.-2025-001639

PATIENT
  Age: 16 Year
  Sex: Female

DRUGS (1)
  1. KETALAR [Suspect]
     Active Substance: KETAMINE HYDROCHLORIDE
     Indication: Substance use

REACTIONS (8)
  - Pyelonephritis [Recovering/Resolving]
  - Septic shock [Recovered/Resolved]
  - Acute kidney injury [Recovering/Resolving]
  - Bladder obstruction [Unknown]
  - Contracted bladder [Unknown]
  - Cystitis ulcerative [Recovering/Resolving]
  - Hydronephrosis [Unknown]
  - Drug abuse [Unknown]
